FAERS Safety Report 7491798-7 (Version None)
Quarter: 2011Q2

REPORT INFORMATION
  Report Type: 
  Country: None (occurrence: None)
  Receive Date: 20110519
  Receipt Date: 20110513
  Transmission Date: 20111010
  Serious: Yes (Other)
  Sender: FDA-Public Use
  Company Number: PL-ABBOTT-11P-129-0725848-00

PATIENT
  Sex: Male

DRUGS (2)
  1. CAVINTON [Concomitant]
     Indication: CARDIOVASCULAR DISORDER
     Dates: start: 20110415
  2. DEPAKENE [Suspect]
     Indication: EPILEPSY
     Dosage: TWICE A DAY
     Route: 048

REACTIONS (3)
  - LOSS OF CONSCIOUSNESS [None]
  - WEIGHT DECREASED [None]
  - EPILEPSY [None]
